FAERS Safety Report 5419103-8 (Version None)
Quarter: 2007Q3

REPORT INFORMATION
  Report Type: 
  Country: None (occurrence: None)
  Receive Date: 20070820
  Receipt Date: 20070807
  Transmission Date: 20080115
  Serious: Yes (Other)
  Sender: FDA-Public Use
  Company Number: US-ELI_LILLY_AND_COMPANY-US200708001496

PATIENT
  Age: 36 Year
  Sex: Female

DRUGS (4)
  1. ZYPREXA [Suspect]
     Indication: FIBROMYALGIA
     Dosage: 5 MG, DAILY (1/D)
     Route: 048
     Dates: start: 20020101, end: 20060501
  2. ZYPREXA [Suspect]
     Dosage: 2.5 MG, UNK
     Dates: start: 20060501
  3. NEURONTIN [Concomitant]
     Dosage: 600 MG, 2/D
  4. WELLBUTRIN [Concomitant]
     Dosage: 150 MG, DAILY (1/D)

REACTIONS (8)
  - AGITATION [None]
  - DIARRHOEA [None]
  - DRUG WITHDRAWAL SYNDROME [None]
  - FATIGUE [None]
  - FEELING ABNORMAL [None]
  - HEART RATE INCREASED [None]
  - SEROTONIN SYNDROME [None]
  - TREMOR [None]
